FAERS Safety Report 25958013 (Version 2)
Quarter: 2025Q4

REPORT INFORMATION
  Report Type: Spontaneous
  Country: JP (occurrence: JP)
  Receive Date: 20251024
  Receipt Date: 20251218
  Transmission Date: 20260118
  Serious: Yes (Other)
  Sender: AMGEN
  Company Number: JP-AMGEN-JPNSP2025209670

PATIENT
  Age: 70 Year
  Sex: Male

DRUGS (2)
  1. BEVACIZUMAB [Suspect]
     Active Substance: BEVACIZUMAB
     Indication: Glioma
     Dosage: UNK, (DRIP INFUSION)
     Route: 040
  2. TEMOZOLOMIDE [Concomitant]
     Active Substance: TEMOZOLOMIDE
     Indication: Glioma
     Dosage: UNK
     Route: 065

REACTIONS (3)
  - Glioma [Unknown]
  - COVID-19 [Recovered/Resolved]
  - Off label use [Unknown]
